FAERS Safety Report 4965357-1 (Version None)
Quarter: 2006Q1

REPORT INFORMATION
  Report Type: 
  Country: None (occurrence: None)
  Receive Date: 20060201
  Receipt Date: 20051207
  Transmission Date: 20060701
  Serious: No
  Sender: FDA-Public Use
  Company Number: 2005PV005537

PATIENT
  Age: 61 Year
  Sex: Female
  Weight: 131.0895 kg

DRUGS (8)
  1. BYETTA [Suspect]
     Indication: DIABETES MELLITUS NON-INSULIN-DEPENDENT
     Dosage: SEE IMAGE
     Route: 058
     Dates: start: 20051205, end: 20051209
  2. BYETTA [Suspect]
     Indication: DIABETES MELLITUS NON-INSULIN-DEPENDENT
     Dosage: SEE IMAGE
     Route: 058
     Dates: start: 20051226
  3. PRILOSEC [Concomitant]
  4. ATENOLOL [Concomitant]
  5. GLUCOPHAGE [Concomitant]
  6. AMARYL [Concomitant]
  7. PURE THYROID [Concomitant]
  8. HYDROCHLOROTHIAZIDE [Concomitant]

REACTIONS (10)
  - BACK PAIN [None]
  - DYSGEUSIA [None]
  - DYSPEPSIA [None]
  - DYSPNOEA [None]
  - EARLY SATIETY [None]
  - HEADACHE [None]
  - INCREASED APPETITE [None]
  - INSOMNIA [None]
  - NAUSEA [None]
  - WEIGHT DECREASED [None]
